FAERS Safety Report 9176222 (Version 3)
Quarter: 2013Q2

REPORT INFORMATION
  Report Type: Spontaneous
  Country: US (occurrence: US)
  Receive Date: 20130321
  Receipt Date: 20130618
  Transmission Date: 20140414
  Serious: Yes (Hospitalization)
  Sender: FDA-Public Use
  Company Number: US-BIOGENIDEC-2013BI023961

PATIENT
  Age: 42 Year
  Sex: Female

DRUGS (2)
  1. AVONEX [Suspect]
     Indication: MULTIPLE SCLEROSIS
     Route: 030
     Dates: start: 20121219
  2. MEDICATIONS (NOS) [Concomitant]

REACTIONS (6)
  - Overdose [Recovered/Resolved]
  - Suicide attempt [Recovered/Resolved]
  - Depression [Unknown]
  - Anxiety disorder [Unknown]
  - Bipolar disorder [Not Recovered/Not Resolved]
  - Influenza like illness [Recovered/Resolved]
